FAERS Safety Report 11003596 (Version 1)
Quarter: 2015Q2

REPORT INFORMATION
  Report Type: Spontaneous
  Country: KR (occurrence: KR)
  Receive Date: 20150409
  Receipt Date: 20150409
  Transmission Date: 20150821
  Serious: Yes (Hospitalization)
  Sender: FDA-Public Use
  Company Number: KR-ALKEM-000935

PATIENT
  Age: 55 Year
  Sex: Female

DRUGS (6)
  1. METFORMIN [Suspect]
     Active Substance: METFORMIN HYDROCHLORIDE
     Indication: PRODUCT USED FOR UNKNOWN INDICATION
  2. AMLODIPINE [Concomitant]
     Active Substance: AMLODIPINE BESYLATE
  3. OLMESARTAN/OLMESARTAN MEDOXOMIL [Concomitant]
  4. ASCORBIC ACID/BIOTIN/CALCIUM/CALCIUM PANTOTHENATE/CYANOCOBALAMIN/NICOTINAMIDE/PYRIDOXINE HYDROCHLORI [Concomitant]
     Dosage: VITAMIN COMPLEX INCLUDING B AND C
  5. FERRIC HYDROXIDE POLYMALTOSE [Concomitant]
  6. SITAGLIPTIN/SITAGLIPTIN PHOSPHATE [Concomitant]

REACTIONS (1)
  - Toxic encephalopathy [Recovered/Resolved]
